FAERS Safety Report 6363469-1 (Version None)
Quarter: 2009Q3

REPORT INFORMATION
  Report Type: 
  Country: None (occurrence: None)
  Receive Date: 20090919
  Receipt Date: 20090630
  Transmission Date: 20100115
  Serious: No
  Sender: FDA-Public Use
  Company Number: US-ABBOTT-09P-163-0582723-00

PATIENT
  Sex: Female
  Weight: 90.8 kg

DRUGS (3)
  1. HUMIRA [Suspect]
     Indication: CROHN'S DISEASE
     Dates: start: 20090404
  2. HUMIRA [Suspect]
     Dates: end: 20090623
  3. HUMIRA [Suspect]
     Indication: CROHN'S DISEASE
     Dates: start: 20090623

REACTIONS (2)
  - ALOPECIA [None]
  - INCORRECT DOSE ADMINISTERED [None]
